FAERS Safety Report 5385533-6 (Version None)
Quarter: 2007Q3

REPORT INFORMATION
  Report Type: 
  Country: None (occurrence: None)
  Receive Date: 20070712
  Receipt Date: 20070709
  Transmission Date: 20080115
  Serious: Yes (Hospitalization)
  Sender: FDA-Public Use
  Company Number: A0662506A

PATIENT
  Age: 1 Day
  Sex: Male

DRUGS (1)
  1. RETROVIR [Suspect]
     Indication: HIV INFECTION
     Dosage: 17.5MG FOUR TIMES PER DAY
     Route: 048
     Dates: start: 20070708, end: 20070709

REACTIONS (2)
  - DRUG PRESCRIBING ERROR [None]
  - HEPATIC ENZYME INCREASED [None]
